FAERS Safety Report 7953258-6 (Version None)
Quarter: 2011Q4

REPORT INFORMATION
  Report Type: 
  Country: None (occurrence: None)
  Receive Date: 20111201
  Receipt Date: 20111121
  Transmission Date: 20120403
  Serious: Yes (Hospitalization, Other)
  Sender: FDA-Public Use
  Company Number: JP-ROCHE-1010791

PATIENT
  Sex: Male
  Weight: 89 kg

DRUGS (16)
  1. OMALIZUMAB [Suspect]
     Indication: ASTHMA
     Route: 058
     Dates: start: 20111101
  2. THEOLONG [Concomitant]
  3. ROHYPNOL [Concomitant]
  4. MAGNESIUM SULFATE [Concomitant]
  5. SPIRIVA [Concomitant]
  6. LANSOPRAZOLE [Concomitant]
  7. OLMESARTAN MEDOXOMIL [Concomitant]
  8. EPHEDRA EQUISETINA [Concomitant]
  9. MUCODYNE [Concomitant]
  10. BISOLVON [Concomitant]
  11. FLUTICASONE PROPIONATE/SALMETEROL [Concomitant]
  12. MEPTIN [Concomitant]
  13. ACTONEL [Concomitant]
  14. PREDNISOLONE [Concomitant]
  15. SULFAMETHOXAZOLE AND TRIMETHOPRIM [Concomitant]
  16. SINGULAIR [Concomitant]

REACTIONS (2)
  - CHOLECYSTITIS [None]
  - CHOLELITHIASIS [None]
